FAERS Safety Report 19059813 (Version 1)
Quarter: 2021Q1

REPORT INFORMATION
  Report Type: Spontaneous
  Country: HR (occurrence: HR)
  Receive Date: 20210326
  Receipt Date: 20210326
  Transmission Date: 20210420
  Serious: Yes (Hospitalization, Other)
  Sender: FDA-Public Use
  Company Number: HR-LUPIN PHARMACEUTICALS INC.-2021-03737

PATIENT
  Age: 48 Year
  Sex: Female

DRUGS (8)
  1. VANCOMYCIN [Suspect]
     Active Substance: VANCOMYCIN
     Indication: ANTIBIOTIC THERAPY
     Dosage: 2.5 MILLILITER, QID
     Route: 048
     Dates: start: 2015
  2. VANCOMYCIN [Suspect]
     Active Substance: VANCOMYCIN
     Dosage: 1 GRAM, BID (2 X 1G)
     Route: 042
  3. MEROPENEM. [Suspect]
     Active Substance: MEROPENEM
     Dosage: 1 GRAM, TID (EVERY 8 HOURS)
     Route: 042
     Dates: start: 2015
  4. AMIKACIN. [Suspect]
     Active Substance: AMIKACIN
     Indication: ANTIBIOTIC THERAPY
     Dosage: 500 MILLIGRAM, BID (2 X 500MG DAILY FOR 8 DAYS)
     Route: 042
     Dates: start: 2015, end: 2015
  5. AMPHOTERICIN B. [Concomitant]
     Active Substance: AMPHOTERICIN B
     Indication: EVIDENCE BASED TREATMENT
     Dosage: UNK
     Route: 065
  6. IMIPENEM AND CILASTATIN [Suspect]
     Active Substance: CILASTATIN SODIUM\IMIPENEM
     Indication: ANTIBIOTIC THERAPY
     Dosage: 1 GRAM, TID (3 X 1G DAILY FOR 10 DAYS)
     Route: 042
     Dates: start: 2015, end: 2015
  7. MEROPENEM. [Suspect]
     Active Substance: MEROPENEM
     Indication: ANTIBIOTIC THERAPY
     Dosage: 1 GRAM, TID (3 X 1G DAILY FOR 17 DAYS)
     Route: 042
     Dates: start: 2015, end: 2015
  8. PIPERACILLIN/TAZOBACTAM [Suspect]
     Active Substance: PIPERACILLIN SODIUM\TAZOBACTAM SODIUM
     Indication: ANTIBIOTIC THERAPY
     Dosage: 4.5 GRAM, TID (3 X 4.5G DAILY FOR 4 DAYS)
     Route: 042
     Dates: start: 2015, end: 2015

REACTIONS (3)
  - Pathogen resistance [Unknown]
  - Bacterial disease carrier [Unknown]
  - Clostridium difficile infection [Unknown]
